FAERS Safety Report 23241795 (Version 1)
Quarter: 2023Q4

REPORT INFORMATION
  Report Type: Spontaneous
  Country: FR (occurrence: FR)
  Receive Date: 20231129
  Receipt Date: 20231129
  Transmission Date: 20240110
  Serious: Yes (Other)
  Sender: FDA-Public Use
  Company Number: FR-002147023-NVSC2023FR225655

PATIENT
  Age: 21 Year
  Sex: Female
  Weight: 50 kg

DRUGS (3)
  1. EXJADE [Suspect]
     Active Substance: DEFERASIROX
     Indication: Thalassaemia beta
     Dosage: UNK
     Route: 065
  2. DESFERAL [Concomitant]
     Active Substance: DEFEROXAMINE MESYLATE
     Indication: Iron overload
     Dosage: 3 G (5 OUT OF 7 DAYS)
     Route: 065
  3. FERRIPROX [Concomitant]
     Active Substance: DEFERIPRONE
     Indication: Agranulocytosis
     Dosage: UNK
     Route: 065

REACTIONS (2)
  - Renal tubular disorder [Unknown]
  - Off label use [Unknown]
